FAERS Safety Report 5519176-8 (Version None)
Quarter: 2007Q4

REPORT INFORMATION
  Report Type: 
  Country: None (occurrence: None)
  Receive Date: 20071114
  Receipt Date: 20071102
  Transmission Date: 20080405
  Serious: Yes (Hospitalization)
  Sender: FDA-Public Use
  Company Number: GXKR2007DE09491

PATIENT
  Age: 40 Year
  Sex: Female

DRUGS (1)
  1. TRAMADOL 1A PHARMA (NGX)(TRAMADOL) TABLET, 150 [Suspect]
     Dosage: ORAL
     Route: 048

REACTIONS (4)
  - HEART RATE DECREASED [None]
  - MUSCLE SPASMS [None]
  - VERTIGO [None]
  - VOMITING [None]
